FAERS Safety Report 9698614 (Version 3)
Quarter: 2014Q1

REPORT INFORMATION
  Report Type: Report from Study
  Country: RU (occurrence: RU)
  Receive Date: 20131120
  Receipt Date: 20140123
  Transmission Date: 20141002
  Serious: Yes (Death, Hospitalization, Congenital Anomaly)
  Sender: FDA-Public Use
  Company Number: RU-VIIV HEALTHCARE LIMITED-Z0021603A

PATIENT
  Sex: 0

DRUGS (4)
  1. GSK1349572 [Suspect]
     Indication: HIV INFECTION
     Dosage: 50MG PER DAY
     Route: 064
     Dates: start: 20110923, end: 20130404
  2. ABACAVIR [Concomitant]
     Indication: ACQUIRED IMMUNODEFICIENCY SYNDROME
     Dosage: 600MG PER DAY
     Route: 064
     Dates: start: 20110923
  3. ATAZANAVIR [Concomitant]
     Indication: ACQUIRED IMMUNODEFICIENCY SYNDROME
     Dosage: 300MG PER DAY
     Route: 064
     Dates: start: 20110923
  4. RITONAVIR [Concomitant]
     Indication: ACQUIRED IMMUNODEFICIENCY SYNDROME
     Dosage: 100MG PER DAY
     Route: 064
     Dates: start: 20110923

REACTIONS (1)
  - Double outlet right ventricle [Fatal]
